FAERS Safety Report 8115431-6 (Version None)
Quarter: 2012Q1

REPORT INFORMATION
  Report Type: 
  Country: None (occurrence: None)
  Receive Date: 20120206
  Receipt Date: 20120123
  Transmission Date: 20120608
  Serious: Yes (Hospitalization, Other)
  Sender: FDA-Public Use
  Company Number: US-ELI_LILLY_AND_COMPANY-US201201006810

PATIENT
  Sex: Female
  Weight: 81.633 kg

DRUGS (3)
  1. GEODON [Concomitant]
     Indication: DEPRESSION
     Dosage: 40 MG, QD
     Route: 048
     Dates: start: 20101001
  2. GEODON [Concomitant]
     Dosage: 40 MG, BID
     Route: 048
     Dates: end: 20111001
  3. PROZAC [Suspect]
     Indication: DEPRESSION
     Dosage: 20 MG, QD
     Route: 048
     Dates: start: 20110801, end: 20111016

REACTIONS (9)
  - HAEMOGLOBIN DECREASED [None]
  - NERVOUSNESS [None]
  - RED BLOOD CELL COUNT DECREASED [None]
  - STRESS [None]
  - INSOMNIA [None]
  - WHITE BLOOD CELL COUNT DECREASED [None]
  - MENTAL DISORDER [None]
  - HYPERTENSION [None]
  - ANXIETY [None]
